FAERS Safety Report 6791400-3 (Version None)
Quarter: 2010Q2

REPORT INFORMATION
  Report Type: 
  Country: None (occurrence: None)
  Receive Date: 20100624
  Receipt Date: 20100614
  Transmission Date: 20101027
  Serious: Yes (Death)
  Sender: FDA-Public Use
  Company Number: US-PURDUE-USA-2010-0044099

PATIENT
  Age: 34 Year
  Sex: Male

DRUGS (2)
  1. DILAUDID [Suspect]
     Indication: PROCEDURAL PAIN
     Dosage: 3 INJ, SEE TEXT
     Dates: start: 20100501
  2. OXYCODONE HCL [Suspect]
     Indication: FIBROMYALGIA

REACTIONS (2)
  - CYANOSIS [None]
  - DEATH [None]
